FAERS Safety Report 7417059-X (Version None)
Quarter: 2011Q2

REPORT INFORMATION
  Report Type: 
  Country: None (occurrence: None)
  Receive Date: 20110406
  Receipt Date: 20110323
  Transmission Date: 20111010
  Serious: Yes (Hospitalization)
  Sender: FDA-Public Use
  Company Number: 019811

PATIENT
  Sex: Female
  Weight: 60 kg

DRUGS (7)
  1. LACOSAMIDE [Suspect]
     Indication: EPILEPSY
     Dosage: (50 MG BID ORAL), (150 MG BID ORAL), (200 MG BID, UPTITRATING OF DOSE ORAL)
     Route: 048
     Dates: start: 20100923, end: 20100924
  2. LACOSAMIDE [Suspect]
     Indication: EPILEPSY
     Dosage: (50 MG BID ORAL), (150 MG BID ORAL), (200 MG BID, UPTITRATING OF DOSE ORAL)
     Route: 048
     Dates: start: 20100901, end: 20100919
  3. LACOSAMIDE [Suspect]
     Indication: EPILEPSY
     Dosage: (50 MG BID ORAL), (150 MG BID ORAL), (200 MG BID, UPTITRATING OF DOSE ORAL)
     Route: 048
     Dates: start: 20100925
  4. LACOSAMIDE [Suspect]
     Indication: EPILEPSY
     Dosage: (50 MG BID ORAL), (150 MG BID ORAL), (200 MG BID, UPTITRATING OF DOSE ORAL)
     Route: 048
     Dates: start: 20100920, end: 20100922
  5. LAMOTRIGINE [Concomitant]
  6. PANTOZOL /01263202/ [Concomitant]
  7. FRISIUM [Concomitant]

REACTIONS (5)
  - DIPLOPIA [None]
  - HALLUCINATION [None]
  - CONVULSION [None]
  - CONFUSIONAL STATE [None]
  - STATUS EPILEPTICUS [None]
